FAERS Safety Report 7323209-6 (Version None)
Quarter: 2011Q1

REPORT INFORMATION
  Report Type: 
  Country: None (occurrence: None)
  Receive Date: 20110216
  Receipt Date: 20110202
  Transmission Date: 20110831
  Serious: Yes (Hospitalization, Other)
  Sender: FDA-Public Use
  Company Number: 2011MA000987

PATIENT
  Age: 68 Year
  Sex: Female

DRUGS (3)
  1. CON MEDS [Concomitant]
  2. PREV MEDS [Concomitant]
  3. PACLITAXEL [Suspect]
     Indication: BREAST CANCER
     Dosage: IV
     Route: 042

REACTIONS (3)
  - METHAEMOGLOBINAEMIA [None]
  - PNEUMOCYSTIS JIROVECI PNEUMONIA [None]
  - FEBRILE NEUTROPENIA [None]
